FAERS Safety Report 10950740 (Version 1)
Quarter: 2015Q1

REPORT INFORMATION
  Report Type: Spontaneous
  Country: NL (occurrence: NL)
  Receive Date: 20150324
  Receipt Date: 20150324
  Transmission Date: 20150721
  Serious: Yes (Death)
  Sender: FDA-Public Use
  Company Number: NL-PFIZER INC-2015101655

PATIENT
  Age: 56 Year
  Sex: Male

DRUGS (8)
  1. MEDIKINET [Suspect]
     Active Substance: METHYLPHENIDATE
     Dosage: 50 MG, 1X/DAY
     Dates: start: 20140829
  2. TRAZODONE [Suspect]
     Active Substance: TRAZODONE HYDROCHLORIDE
     Dosage: 100 MG, 1X/DAY AS NEEDED
     Dates: start: 20140124
  3. OMEPRAZOL [Concomitant]
     Active Substance: OMEPRAZOLE
     Dosage: 20 MG, 1X/DAY
  4. MEDIKINET [Suspect]
     Active Substance: METHYLPHENIDATE
     Dosage: 20 MG, 1X/DAY
  5. LEXAPRO [Suspect]
     Active Substance: ESCITALOPRAM OXALATE
     Dosage: 15 MG, 1X/DAY
     Dates: start: 201012
  6. MEDIKINET [Suspect]
     Active Substance: METHYLPHENIDATE
     Dosage: 40 MG, 1X/DAY
     Dates: start: 20140606
  7. ZOPICLON [Suspect]
     Active Substance: ZOPICLONE
     Dosage: 15 MG, 2X/DAY AS NEEDED
  8. ALPRAZOLAM. [Suspect]
     Active Substance: ALPRAZOLAM
     Dosage: 0.5 MG, 3X/DAY AS NEEDED

REACTIONS (1)
  - Death [Fatal]

NARRATIVE: CASE EVENT DATE: 20140831
